FAERS Safety Report 9658070 (Version 1)
Quarter: 2013Q4

REPORT INFORMATION
  Report Type: Spontaneous
  Country: US (occurrence: US)
  Receive Date: 20131030
  Receipt Date: 20131030
  Transmission Date: 20140711
  Serious: No
  Sender: FDA-Public Use
  Company Number: US-009507513-1310USA014287

PATIENT
  Age: 30 Year
  Sex: Female
  Weight: 77.98 kg

DRUGS (1)
  1. MIRALAX [Suspect]
     Indication: CONSTIPATION
     Dosage: 17 G, QD
     Route: 048
     Dates: start: 201201, end: 201309

REACTIONS (2)
  - Drug ineffective [Unknown]
  - Product taste abnormal [Unknown]
